FAERS Safety Report 11255875 (Version 1)
Quarter: 2015Q3

REPORT INFORMATION
  Report Type: Spontaneous
  Country: CA (occurrence: CA)
  Receive Date: 20150709
  Receipt Date: 20150709
  Transmission Date: 20151125
  Serious: Yes (Hospitalization)
  Sender: FDA-Public Use
  Company Number: CA-SA-2015SA097631

PATIENT
  Sex: Female

DRUGS (5)
  1. METHOTREXATE [Concomitant]
     Active Substance: METHOTREXATE
     Route: 065
     Dates: start: 200703, end: 200808
  2. ORENCIA [Concomitant]
     Active Substance: ABATACEPT
     Route: 058
     Dates: start: 201003, end: 201202
  3. REMICADE [Concomitant]
     Active Substance: INFLIXIMAB
     Route: 042
     Dates: start: 200812, end: 200912
  4. ARAVA [Suspect]
     Active Substance: LEFLUNOMIDE
     Indication: RHEUMATOID ARTHRITIS
     Dosage: FREQUENCY: Q 2 DAYS
     Route: 065
     Dates: start: 200707
  5. PLAQUENIL [Concomitant]
     Active Substance: HYDROXYCHLOROQUINE SULFATE
     Route: 065
     Dates: start: 20070207, end: 20081117

REACTIONS (2)
  - Renal failure [Not Recovered/Not Resolved]
  - Clostridium difficile colitis [Unknown]
